FAERS Safety Report 8790452 (Version 1)
Quarter: 2012Q4

REPORT INFORMATION
  Report Type: Spontaneous
  Country: US (occurrence: None)
  Receive Date: 20120911
  Receipt Date: 20120911
  Transmission Date: 20130627
  Serious: Yes (Other)
  Sender: FDA-Public Use
  Company Number: None

PATIENT
  Age: 65 Year
  Sex: Female
  Weight: 84.37 kg

DRUGS (1)
  1. LISINOPRIL [Suspect]
     Indication: BLOOD PRESSURE HIGH
     Dosage: 1 daily
     Dates: start: 20111201, end: 20120523

REACTIONS (4)
  - Hypersensitivity [None]
  - Respiratory failure [None]
  - Apparent death [None]
  - Pneumothorax [None]
